FAERS Safety Report 12858544 (Version 7)
Quarter: 2016Q4

REPORT INFORMATION
  Report Type: Spontaneous
  Country: KR (occurrence: KR)
  Receive Date: 20161018
  Receipt Date: 20161230
  Transmission Date: 20170207
  Serious: Yes (Hospitalization, Other)
  Sender: FDA-Public Use
  Company Number: KR-009507513-1610KOR008130

PATIENT
  Age: 63 Year
  Sex: Male
  Weight: 61.8 kg

DRUGS (70)
  1. DOXORUBIN [Concomitant]
     Active Substance: DOXORUBICIN
     Indication: CHEMOTHERAPY
     Dosage: 90 MG, CYCLICAL (CYCLE 2)
     Route: 042
     Dates: start: 20160907, end: 20160907
  2. MABTHERA [Concomitant]
     Active Substance: RITUXIMAB
     Dosage: 660 MG, CYCLICAL (CYCLE 4)
     Route: 042
     Dates: start: 20161019, end: 20161019
  3. TYLENOL EXTENDED RELIEF CAPLETS [Concomitant]
     Active Substance: ACETAMINOPHEN
     Dosage: 650 MG, ONCE
     Route: 048
     Dates: start: 20161019, end: 20161019
  4. VINCRISTINE SULFATE. [Concomitant]
     Active Substance: VINCRISTINE SULFATE
     Indication: CHEMOTHERAPY
     Dosage: 2 MG, CYCLICAL (CYCLE 2)
     Route: 042
     Dates: start: 20160907, end: 20160907
  5. PENIRAMIN [Concomitant]
     Indication: DRUG TOXICITY PROPHYLAXIS
     Dosage: 4 MG, ONCE
     Route: 042
     Dates: start: 20160907, end: 20160907
  6. MEGACE [Concomitant]
     Active Substance: MEGESTROL ACETATE
     Indication: DECREASED APPETITE
     Dosage: 1 PKG, QD
     Route: 048
     Dates: start: 20160907, end: 20160912
  7. LEVOPRIDE [Concomitant]
     Indication: DYSPEPSIA
     Dosage: 1 TABLET, TID
     Route: 048
     Dates: start: 20160826
  8. TARGIN PR [Concomitant]
     Indication: PAIN PROPHYLAXIS
     Dosage: 1 TABLET, QD
     Route: 048
     Dates: start: 20160808
  9. NEULASTA [Concomitant]
     Active Substance: PEGFILGRASTIM
     Dosage: 6 MG, QD
     Route: 058
     Dates: start: 20161020, end: 20161020
  10. NEULASTA [Concomitant]
     Active Substance: PEGFILGRASTIM
     Dosage: 6 MG, QD
     Route: 058
     Dates: start: 20161202, end: 20161202
  11. CITOPCIN (CIPROFLOXACIN HYDROCHLORIDE) [Concomitant]
     Active Substance: CIPROFLOXACIN HYDROCHLORIDE
     Indication: PNEUMONIA
     Dosage: 250 MG, QD
     Route: 048
     Dates: start: 20161203
  12. EMEND (FOSAPREPITANT DIMEGLUMINE) [Suspect]
     Active Substance: FOSAPREPITANT DIMEGLUMINE
     Dosage: 150 MG, ONCE
     Route: 042
     Dates: start: 20161019, end: 20161019
  13. EMEND (FOSAPREPITANT DIMEGLUMINE) [Suspect]
     Active Substance: FOSAPREPITANT DIMEGLUMINE
     Dosage: 150 MG, ONCE
     Route: 042
     Dates: start: 20161109, end: 20161109
  14. ENDOXAN [Concomitant]
     Active Substance: CYCLOPHOSPHAMIDE
     Dosage: 1320 MG, CYCLICAL (CYCLE 5)
     Route: 042
     Dates: start: 20161109, end: 20161109
  15. SOLONDO [Concomitant]
     Active Substance: PREDNISOLONE
     Dosage: 30 MG, BID
     Route: 048
     Dates: start: 20161130, end: 20161204
  16. PENIRAMIN [Concomitant]
     Dosage: 4 MG, ONCE
     Route: 042
     Dates: start: 20161130, end: 20161130
  17. DENOGAN [Concomitant]
     Active Substance: PROPACETAMOL HYDROCHLORIDE
     Dosage: 1 G, ONCE
     Route: 042
     Dates: start: 20161127, end: 20161127
  18. MAGO [Concomitant]
     Indication: CONSTIPATION PROPHYLAXIS
     Dosage: 500 MG, QD
     Route: 048
     Dates: start: 20160911, end: 20161016
  19. NEULASTA [Concomitant]
     Active Substance: PEGFILGRASTIM
     Dosage: 6 MG, QD
     Route: 058
     Dates: start: 20161110, end: 20161110
  20. DOXORUBIN [Concomitant]
     Active Substance: DOXORUBICIN
     Dosage: 90 MG, CYCLICAL (CYCLE 3)
     Route: 042
     Dates: start: 20160929, end: 20160929
  21. DOXORUBIN [Concomitant]
     Active Substance: DOXORUBICIN
     Dosage: 90 MG, CYCLICAL (CYCLE 5)
     Route: 042
     Dates: start: 20161109, end: 20161109
  22. VINCRISTINE SULFATE. [Concomitant]
     Active Substance: VINCRISTINE SULFATE
     Dosage: 2 MG, CYCLICAL (CYCLE 3)
     Route: 042
     Dates: start: 20160929, end: 20160929
  23. VINCRISTINE SULFATE. [Concomitant]
     Active Substance: VINCRISTINE SULFATE
     Dosage: 2 MG, CYCLICAL (CYCLE 6)
     Route: 042
     Dates: start: 20161130, end: 20161130
  24. MABTHERA [Concomitant]
     Active Substance: RITUXIMAB
     Dosage: 660 MG, CYCLICAL (CYCLE 2)
     Route: 042
     Dates: start: 20160907, end: 20160907
  25. SOLONDO [Concomitant]
     Active Substance: PREDNISOLONE
     Dosage: 40 MG, QD
     Route: 048
     Dates: start: 20161109, end: 20161113
  26. SOLONDO [Concomitant]
     Active Substance: PREDNISOLONE
     Dosage: 30 MG, BID
     Route: 048
     Dates: start: 20161109, end: 20161113
  27. MACPERAN [Concomitant]
     Active Substance: METOCLOPRAMIDE HYDROCHLORIDE
     Indication: PROPHYLAXIS OF NAUSEA AND VOMITING
     Dosage: 1 TABLET, TID
     Route: 048
     Dates: start: 20160815
  28. MEGACE [Concomitant]
     Active Substance: MEGESTROL ACETATE
     Dosage: 10 ML, QD
     Route: 048
     Dates: start: 20160927
  29. QUETAPIN [Concomitant]
     Indication: INSOMNIA
     Dosage: 25 MG, QD
     Route: 048
     Dates: start: 20160907
  30. ENDOXAN [Concomitant]
     Active Substance: CYCLOPHOSPHAMIDE
     Indication: CHEMOTHERAPY
     Dosage: 1320 MG, CYCLICAL (CYCLE 2)
     Route: 042
     Dates: start: 20160907, end: 20160907
  31. MABTHERA [Concomitant]
     Active Substance: RITUXIMAB
     Dosage: 660 MG, CYCLICAL (CYCLE 6)
     Route: 042
     Dates: start: 20161130, end: 20161130
  32. SOLONDO [Concomitant]
     Active Substance: PREDNISOLONE
     Dosage: 40 MG, QD
     Route: 048
     Dates: start: 20160929, end: 20161003
  33. SOLONDO [Concomitant]
     Active Substance: PREDNISOLONE
     Dosage: 30 MG, BID
     Route: 048
     Dates: start: 20161019, end: 20161023
  34. ALOXI [Concomitant]
     Active Substance: PALONOSETRON HYDROCHLORIDE
     Dosage: 0.25 MG, ONCE
     Route: 042
     Dates: start: 20160929, end: 20160929
  35. ALOXI [Concomitant]
     Active Substance: PALONOSETRON HYDROCHLORIDE
     Dosage: 0.25 MG, ONCE
     Route: 042
     Dates: start: 20161130, end: 20161130
  36. PENIRAMIN [Concomitant]
     Dosage: 4 MG, ONCE
     Route: 042
     Dates: start: 20161109, end: 20161109
  37. MACPERAN [Concomitant]
     Active Substance: METOCLOPRAMIDE HYDROCHLORIDE
     Dosage: 1 TABLET, TID
     Route: 048
     Dates: start: 20161203, end: 20161206
  38. BEAROBAN [Concomitant]
     Indication: HERPES SIMPLEX
     Dosage: 10 ML, BID
     Route: 050
     Dates: start: 20161206
  39. EMEND (FOSAPREPITANT DIMEGLUMINE) [Suspect]
     Active Substance: FOSAPREPITANT DIMEGLUMINE
     Dosage: 150 MG, ONCE
     Route: 042
     Dates: start: 20160929, end: 20160929
  40. ENDOXAN [Concomitant]
     Active Substance: CYCLOPHOSPHAMIDE
     Dosage: 1320 MG, CYCLICAL (CYCLE 3)
     Route: 042
     Dates: start: 20160929, end: 20160929
  41. MABTHERA [Concomitant]
     Active Substance: RITUXIMAB
     Dosage: 660 MG, CYCLICAL (CYCLE 5)
     Route: 042
     Dates: start: 20161109, end: 20161109
  42. SOLONDO [Concomitant]
     Active Substance: PREDNISOLONE
     Indication: CHEMOTHERAPY
     Dosage: 40 MG, QD
     Route: 048
     Dates: start: 20160907, end: 20160911
  43. SOLONDO [Concomitant]
     Active Substance: PREDNISOLONE
     Dosage: 30 MG, BID
     Route: 048
     Dates: start: 20160929, end: 20161003
  44. SOLONDO [Concomitant]
     Active Substance: PREDNISOLONE
     Dosage: 40 MG, QD
     Route: 048
     Dates: start: 20161019, end: 20161023
  45. ALOXI [Concomitant]
     Active Substance: PALONOSETRON HYDROCHLORIDE
     Indication: PROPHYLAXIS OF NAUSEA AND VOMITING
     Dosage: 0.25 MG, ONCE
     Route: 042
     Dates: start: 20160907, end: 20160907
  46. ALOXI [Concomitant]
     Active Substance: PALONOSETRON HYDROCHLORIDE
     Dosage: 0.25 MG, ONCE
     Route: 042
     Dates: start: 20161109, end: 20161109
  47. TYLENOL EXTENDED RELIEF CAPLETS [Concomitant]
     Active Substance: ACETAMINOPHEN
     Dosage: 650 MG, ONCE
     Route: 048
     Dates: start: 20160929, end: 20160929
  48. PENIRAMIN [Concomitant]
     Dosage: 4 MG, ONCE
     Route: 042
     Dates: start: 20160929, end: 20160929
  49. NEXIUM [Concomitant]
     Active Substance: ESOMEPRAZOLE MAGNESIUM
     Indication: PROPHYLAXIS
     Dosage: 20 MG, QD
     Route: 048
     Dates: start: 20160907
  50. PIPERACILLIN AND TAZOBACTAM [Concomitant]
     Active Substance: PIPERACILLIN SODIUM\TAZOBACTAM SODIUM
     Indication: PNEUMONIA
     Dosage: 4.5 G, TID
     Route: 042
     Dates: start: 20161127, end: 20161130
  51. NEULASTA [Concomitant]
     Active Substance: PEGFILGRASTIM
     Indication: PROPHYLAXIS
     Dosage: 6 MG, QD
     Route: 058
     Dates: start: 20160930, end: 20160930
  52. ENDOXAN [Concomitant]
     Active Substance: CYCLOPHOSPHAMIDE
     Dosage: 1320 MG, CYCLICAL (CYCLE 6)
     Route: 042
     Dates: start: 20161130, end: 20161130
  53. VINCRISTINE SULFATE. [Concomitant]
     Active Substance: VINCRISTINE SULFATE
     Dosage: 2 MG, CYCLICAL (CYCLE 5)
     Route: 042
     Dates: start: 20161109, end: 20161109
  54. ALOXI [Concomitant]
     Active Substance: PALONOSETRON HYDROCHLORIDE
     Dosage: 0.25 MG, ONCE
     Route: 042
     Dates: start: 20161019, end: 20161019
  55. VALTREX [Concomitant]
     Active Substance: VALACYCLOVIR HYDROCHLORIDE
     Indication: HERPES SIMPLEX
     Dosage: 4 DF, BID
     Route: 048
     Dates: start: 20161206, end: 20161206
  56. EMEND (FOSAPREPITANT DIMEGLUMINE) [Suspect]
     Active Substance: FOSAPREPITANT DIMEGLUMINE
     Indication: PROPHYLAXIS OF NAUSEA AND VOMITING
     Dosage: 150 MG, ONCE
     Route: 042
     Dates: start: 20160907, end: 20160907
  57. EMEND (FOSAPREPITANT DIMEGLUMINE) [Suspect]
     Active Substance: FOSAPREPITANT DIMEGLUMINE
     Dosage: 150 MG, ONCE
     Route: 042
     Dates: start: 20161130, end: 20161130
  58. ENDOXAN [Concomitant]
     Active Substance: CYCLOPHOSPHAMIDE
     Dosage: 1320 MG, CYCLICAL (CYCLE 4)
     Route: 042
     Dates: start: 20161019, end: 20161019
  59. DOXORUBIN [Concomitant]
     Active Substance: DOXORUBICIN
     Dosage: 90 MG, CYCLICAL (CYCLE 4)
     Route: 042
     Dates: start: 20161019, end: 20161019
  60. DOXORUBIN [Concomitant]
     Active Substance: DOXORUBICIN
     Dosage: 90 MG, CYCLICAL (CYCLE 6)
     Route: 042
     Dates: start: 20161130, end: 20161130
  61. VINCRISTINE SULFATE. [Concomitant]
     Active Substance: VINCRISTINE SULFATE
     Dosage: 2 MG, CYCLICAL  (CYCLE 4)
     Route: 042
     Dates: start: 20161019, end: 20161019
  62. MABTHERA [Concomitant]
     Active Substance: RITUXIMAB
     Indication: CHEMOTHERAPY
     Dosage: 660 MG, CYCLICAL (CYCLE 3)
     Route: 042
     Dates: start: 20160929, end: 20160929
  63. SOLONDO [Concomitant]
     Active Substance: PREDNISOLONE
     Dosage: 30 MG, BID
     Route: 048
     Dates: start: 20160907, end: 20160911
  64. SOLONDO [Concomitant]
     Active Substance: PREDNISOLONE
     Dosage: 40 MG, QD
     Route: 048
     Dates: start: 20161130, end: 20161204
  65. TYLENOL EXTENDED RELIEF CAPLETS [Concomitant]
     Active Substance: ACETAMINOPHEN
     Indication: DRUG TOXICITY PROPHYLAXIS
     Dosage: 650 MG, ONCE
     Route: 048
     Dates: start: 20160907, end: 20160907
  66. TYLENOL EXTENDED RELIEF CAPLETS [Concomitant]
     Active Substance: ACETAMINOPHEN
     Dosage: 650 MG, ONCE
     Route: 048
     Dates: start: 20161130, end: 20161130
  67. PENIRAMIN [Concomitant]
     Dosage: 4 MG, ONCE
     Route: 042
     Dates: start: 20161019, end: 20161019
  68. DENOGAN [Concomitant]
     Active Substance: PROPACETAMOL HYDROCHLORIDE
     Indication: PYREXIA
     Dosage: 1 G, ONCE
     Route: 042
     Dates: start: 20160928, end: 20160928
  69. SYNACTHEN [Concomitant]
     Active Substance: COSYNTROPIN
     Indication: INVESTIGATION
     Dosage: 0.25 MG, ONCE (STRENGTH: 0.25MG/ML)
     Route: 042
     Dates: start: 20160929, end: 20160929
  70. MACPERAN [Concomitant]
     Active Substance: METOCLOPRAMIDE HYDROCHLORIDE
     Indication: PROPHYLAXIS OF NAUSEA AND VOMITING
     Dosage: 20 MG, BID
     Route: 042
     Dates: start: 20161130, end: 20161202

REACTIONS (6)
  - Pulmonary embolism [Recovered/Resolved]
  - Oral candidiasis [Recovered/Resolved]
  - Diarrhoea [Recovered/Resolved]
  - Herpes simplex [Recovered/Resolved]
  - Oral candidiasis [Recovered/Resolved]
  - Adrenal insufficiency [Recovered/Resolved]

NARRATIVE: CASE EVENT DATE: 20160929
